FAERS Safety Report 4424246-1 (Version None)
Quarter: 2004Q3

REPORT INFORMATION
  Report Type: 
  Country: None (occurrence: None)
  Receive Date: 20040810
  Receipt Date: 20040810
  Transmission Date: 20050211
  Serious: No
  Sender: FDA-Public Use
  Company Number: None

PATIENT

DRUGS (1)
  1. DURAGESIC [Suspect]
     Dosage: APPLY ONE PATCH EVERY 72 HOURS

REACTIONS (13)
  - ASTHENIA [None]
  - CRYING [None]
  - FORMICATION [None]
  - IMPAIRED WORK ABILITY [None]
  - INSOMNIA [None]
  - IRRITABILITY [None]
  - LOSS OF CONSCIOUSNESS [None]
  - MEDICATION ERROR [None]
  - MOOD ALTERED [None]
  - PHARMACEUTICAL PRODUCT COMPLAINT [None]
  - RESTLESSNESS [None]
  - SOMNOLENCE [None]
  - WEIGHT DECREASED [None]
